FAERS Safety Report 8383712 (Version 4)
Quarter: 2012Q4

REPORT INFORMATION
  Report Type: Report from Study
  Country: BR (occurrence: BR)
  Receive Date: 20120201
  Receipt Date: 20120926
  Transmission Date: 20130627
  Serious: Yes (Hospitalization, Other)
  Sender: FDA-Public Use
  Company Number: BR-ABBOTT-12P-020-0896965-00

PATIENT
  Age: 28 None
  Sex: Female
  Weight: 70 kg

DRUGS (6)
  1. HUMIRA 40 MG/ 0.8 ML PRE-FILLED SYRINGE [Suspect]
     Indication: RHEUMATOID ARTHRITIS
     Dates: start: 20110217, end: 201111
  2. HUMIRA 40 MG/ 0.8 ML PRE-FILLED SYRINGE [Suspect]
     Indication: COLITIS
  3. MESALAZINE [Concomitant]
     Indication: COLITIS
  4. MESALAZINE [Concomitant]
  5. MESALAZINE [Concomitant]
  6. CORTISONE [Concomitant]
     Indication: COLITIS

REACTIONS (6)
  - Anaemia [Recovered/Resolved]
  - Colitis [Recovered/Resolved]
  - Malaise [Recovered/Resolved]
  - Hypersensitivity [Recovered/Resolved]
  - Throat tightness [Recovered/Resolved]
  - Intestinal resection [Recovered/Resolved]
